FAERS Safety Report 5451253-2 (Version None)
Quarter: 2007Q3

REPORT INFORMATION
  Report Type: 
  Country: None (occurrence: None)
  Receive Date: 20070911
  Receipt Date: 20070911
  Transmission Date: 20080115
  Serious: Yes (Hospitalization)
  Sender: FDA-Public Use
  Company Number: None

PATIENT
  Age: 36 Year
  Sex: Female
  Weight: 61.2356 kg

DRUGS (1)
  1. OMALIZUMAB / GENENTECH [Suspect]
     Indication: ASTHMA
     Dosage: 225 MG Q 2 WK SQ
     Route: 058
     Dates: start: 20051101, end: 20070801

REACTIONS (5)
  - ASTHMA [None]
  - COUGH [None]
  - INJECTION SITE PRURITUS [None]
  - PRURITUS [None]
  - THROAT TIGHTNESS [None]
